FAERS Safety Report 21177790 (Version 1)
Quarter: 2022Q3

REPORT INFORMATION
  Report Type: Spontaneous
  Country: CN (occurrence: CN)
  Receive Date: 20220805
  Receipt Date: 20220805
  Transmission Date: 20221027
  Serious: Yes (Hospitalization)
  Sender: FDA-Public Use
  Company Number: CN-Merck Healthcare KGaA-9339999

PATIENT
  Age: 34 Year
  Sex: Female
  Weight: 44 kg

DRUGS (5)
  1. ERBITUX [Suspect]
     Active Substance: CETUXIMAB
     Indication: Rectal cancer
     Dosage: 700 MG, DAILY
     Route: 041
     Dates: start: 20220627, end: 20220627
  2. OXALIPLATIN [Suspect]
     Active Substance: OXALIPLATIN
     Indication: Rectal cancer
     Dosage: 120 MG, DAILY (4+7) PUMP INJECTION
     Route: 065
     Dates: start: 20220627, end: 20220627
  3. FLUOROURACIL [Suspect]
     Active Substance: FLUOROURACIL
     Indication: Rectal cancer
     Dosage: 0.6 G, DAILY
     Route: 041
     Dates: start: 20220627, end: 20220627
  4. FLUOROURACIL [Suspect]
     Active Substance: FLUOROURACIL
     Dosage: 1.75 G, DAILY (PUMP INJECTION)
     Route: 041
     Dates: start: 20220627, end: 20220628
  5. LEUCOVORIN CALCIUM [Suspect]
     Active Substance: LEUCOVORIN CALCIUM
     Indication: Rectal cancer
     Dosage: 0.6 G, DAILY (PUMP INJECTION)
     Route: 065
     Dates: start: 20220627, end: 20220627

REACTIONS (1)
  - Myelosuppression [Recovering/Resolving]

NARRATIVE: CASE EVENT DATE: 20220712
